FAERS Safety Report 15261207 (Version 1)
Quarter: 2018Q3

REPORT INFORMATION
  Report Type: Report from Study
  Country: JP (occurrence: JP)
  Receive Date: 20180809
  Receipt Date: 20180809
  Transmission Date: 20181010
  Serious: Yes (Hospitalization)
  Sender: FDA-Public Use
  Company Number: JP-EISAI MEDICAL RESEARCH-EC-2018-043898

PATIENT
  Age: 69 Year
  Sex: Female
  Weight: 43 kg

DRUGS (2)
  1. THYRADIN S [Concomitant]
     Active Substance: LEVOTHYROXINE SODIUM
  2. LENVATINIB [Suspect]
     Active Substance: LENVATINIB
     Indication: ANAPLASTIC THYROID CANCER
     Dosage: UNKNOWN
     Route: 048
     Dates: start: 20170817, end: 20180801

REACTIONS (1)
  - Intestinal obstruction [Unknown]

NARRATIVE: CASE EVENT DATE: 20180801
